FAERS Safety Report 5209932-8 (Version None)
Quarter: 2006Q4

REPORT INFORMATION
  Report Type: 
  Country: None (occurrence: None)
  Receive Date: 20061128
  Receipt Date: 20060325
  Transmission Date: 20070319
  Serious: Yes (Other)
  Sender: FDA-Public Use
  Company Number: 2006042241

PATIENT
  Age: 49 Year
  Sex: Male
  Weight: 108.8633 kg

DRUGS (3)
  1. TIKOSYN [Suspect]
     Indication: ATRIAL FIBRILLATION
     Dosage: 1 MG (0.5 MG, BID INTERVAL: EVERY DAY)
  2. DIGOXIN [Concomitant]
  3. COUMADIN [Concomitant]

REACTIONS (1)
  - ATRIAL FIBRILLATION [None]
